FAERS Safety Report 24848341 (Version 1)
Quarter: 2025Q1

REPORT INFORMATION
  Report Type: Spontaneous
  Country: US (occurrence: US)
  Receive Date: 20250116
  Receipt Date: 20250116
  Transmission Date: 20250409
  Serious: No
  Sender: BIOLOGICAL E. LIMITED
  Company Number: US-BELUSA-2024BELSPO0121

PATIENT

DRUGS (1)
  1. FOSAPREPITANT DIMEGLUMINE [Suspect]
     Active Substance: FOSAPREPITANT DIMEGLUMINE
     Indication: Prophylaxis of nausea and vomiting
     Dates: start: 20241220, end: 20241220

REACTIONS (4)
  - Chest discomfort [Unknown]
  - Back pain [Unknown]
  - Erythema [Unknown]
  - Dyspnoea [Unknown]

NARRATIVE: CASE EVENT DATE: 20241220
